FAERS Safety Report 5861732-1 (Version None)
Quarter: 2008Q3

REPORT INFORMATION
  Report Type: 
  Country: None (occurrence: None)
  Receive Date: 20080826
  Receipt Date: 20080813
  Transmission Date: 20090109
  Serious: Yes (Other)
  Sender: FDA-Public Use
  Company Number: 1000000605

PATIENT
  Age: 69 Year
  Sex: Female
  Weight: 74 kg

DRUGS (1)
  1. CITALOPRAM HYDROBROMIDE [Suspect]
     Indication: DEPRESSED MOOD
     Dosage: (10 MG) ,ORAL
     Route: 048
     Dates: start: 20080718, end: 20080725

REACTIONS (1)
  - RENAL IMPAIRMENT [None]
